FAERS Safety Report 9300545 (Version 1)
Quarter: 2013Q1

REPORT INFORMATION
  Report Type: Spontaneous
  Country: US (occurrence: None)
  Receive Date: 20130107
  Receipt Date: 20130107
  Transmission Date: 20140127
  Serious: No
  Sender: FDA-Public Use
  Company Number: PHEH2012US020723

PATIENT
  Age: 51 Year
  Sex: Female

DRUGS (1)
  1. GILENYA (FINGOLIMOD) UNKNOWN [Suspect]
     Indication: RELAPSING-REMITTING MULTIPLE SCLEROSIS
     Route: 048
     Dates: start: 20110301

REACTIONS (2)
  - Malaise [None]
  - Nasopharyngitis [None]
